FAERS Safety Report 24999383 (Version 1)
Quarter: 2025Q1

REPORT INFORMATION
  Report Type: Spontaneous
  Country: US (occurrence: US)
  Receive Date: 20250222
  Receipt Date: 20250222
  Transmission Date: 20250408
  Serious: No
  Sender: SANOFI AVENTIS
  Company Number: US-SA-2025SA047766

PATIENT
  Sex: Female

DRUGS (12)
  1. DUPIXENT [Suspect]
     Active Substance: DUPILUMAB
     Indication: Asthma
     Dosage: 300 MG, QOW
     Route: 058
  2. ATORVASTATIN [Concomitant]
     Active Substance: ATORVASTATIN
  3. BREZTRI [Concomitant]
     Active Substance: BUDESONIDE\FORMOTEROL\GLYCOPYRROLATE
  4. CARVEDILOL [Concomitant]
     Active Substance: CARVEDILOL
  5. FIASP [Concomitant]
     Active Substance: INSULIN ASPART
  6. GABAPENTIN [Concomitant]
     Active Substance: GABAPENTIN
  7. LANTUS SOLOSTAR [Concomitant]
     Active Substance: INSULIN GLARGINE
  8. MONTELUKAST [Concomitant]
     Active Substance: MONTELUKAST
  9. OLMESARTAN [Concomitant]
     Active Substance: OLMESARTAN
  10. SYNTHROID [Concomitant]
     Active Substance: LEVOTHYROXINE SODIUM
  11. TORSEMIDE [Concomitant]
     Active Substance: TORSEMIDE
  12. VICTOZA [Concomitant]
     Active Substance: LIRAGLUTIDE

REACTIONS (2)
  - Wheezing [Not Recovered/Not Resolved]
  - Dry skin [Not Recovered/Not Resolved]
